FAERS Safety Report 16011069 (Version 1)
Quarter: 2019Q1

REPORT INFORMATION
  Report Type: Spontaneous
  Country: GB (occurrence: GB)
  Receive Date: 20190227
  Receipt Date: 20190227
  Transmission Date: 20190418
  Serious: Yes (Other)
  Sender: FDA-Public Use
  Company Number: GB-TEVA-2019-GB-1015902

PATIENT
  Age: 58 Year
  Sex: Female
  Weight: 124.73 kg

DRUGS (3)
  1. CALCIUM AND VITAMIN D3 [Concomitant]
     Active Substance: CALCIUM\CHOLECALCIFEROL
  2. AMLODIPINE BESILATE [Suspect]
     Active Substance: AMLODIPINE BESYLATE
     Indication: HYPERTENSION
     Dosage: 10 MILLIGRAM DAILY; INCREASED FROM 5MG DOSE AS HAVING NO EFFECT TO BP
     Route: 048
     Dates: start: 20181219
  3. LEMSIP [Suspect]
     Active Substance: ACETAMINOPHEN\ASCORBIC ACID\PHENYLEPHRINE HYDROCHLORIDE\SODIUM CITRATE
     Indication: NASOPHARYNGITIS
     Route: 065

REACTIONS (3)
  - Contraindicated product administered [Unknown]
  - Feeling abnormal [Recovered/Resolved]
  - Ear disorder [Recovered/Resolved]

NARRATIVE: CASE EVENT DATE: 20190126
